FAERS Safety Report 14203224 (Version 3)
Quarter: 2018Q3

REPORT INFORMATION
  Report Type: Report from Study
  Country: FR (occurrence: FR)
  Receive Date: 20171120
  Receipt Date: 20180820
  Transmission Date: 20181010
  Serious: Yes (Death, Hospitalization)
  Sender: FDA-Public Use
  Company Number: FR-BRISTOL-MYERS SQUIBB COMPANY-BMS-2017-103084

PATIENT
  Age: 66 Year
  Sex: Male

DRUGS (2)
  1. INNOHEP [Concomitant]
     Active Substance: TINZAPARIN SODIUM
     Indication: PRODUCT USED FOR UNKNOWN INDICATION
     Route: 065
  2. NIVOLUMAB [Suspect]
     Active Substance: NIVOLUMAB
     Indication: LUNG NEOPLASM MALIGNANT
     Dosage: 186 MG, Q2WK
     Route: 042
     Dates: start: 20170405, end: 20170920

REACTIONS (2)
  - General physical health deterioration [Fatal]
  - Weight decreased [Unknown]

NARRATIVE: CASE EVENT DATE: 20170804
